FAERS Safety Report 10461631 (Version 1)
Quarter: 2014Q3

REPORT INFORMATION
  Report Type: Spontaneous
  Country: US (occurrence: None)
  Receive Date: 20140916
  Receipt Date: 20140916
  Transmission Date: 20150326
  Serious: Yes (Hospitalization)
  Sender: FDA-Public Use
  Company Number: 2014AMD00068

PATIENT
  Age: 50 Year
  Sex: Male

DRUGS (1)
  1. EPINEPHRINE INJECTION USP AUTO-INJECTOR 0.30 MG (EPINEPHRINE) INJECTION [Suspect]
     Active Substance: EPINEPHRINE
     Indication: ALLERGY TO ARTHROPOD STING
     Route: 051
     Dates: start: 20140809, end: 20140809

REACTIONS (9)
  - Dyspnoea [None]
  - Anaphylactic shock [None]
  - Device malfunction [None]
  - Urticaria [None]
  - Chest discomfort [None]
  - Product quality issue [None]
  - Drug ineffective [None]
  - Pharyngeal oedema [None]
  - Inflammation [None]

NARRATIVE: CASE EVENT DATE: 20140809
